FAERS Safety Report 18726456 (Version 2)
Quarter: 2021Q1

REPORT INFORMATION
  Report Type: Spontaneous
  Country: FR (occurrence: FR)
  Receive Date: 20210111
  Receipt Date: 20210216
  Transmission Date: 20210419
  Serious: Yes (Death, Other)
  Sender: FDA-Public Use
  Company Number: FR-JNJFOC-20210112482

PATIENT
  Sex: Female

DRUGS (12)
  1. VENTAVIS [Suspect]
     Active Substance: ILOPROST
     Indication: PULMONARY ARTERIAL HYPERTENSION
     Route: 055
     Dates: start: 20160704, end: 20200525
  2. DOLIPRANE [Concomitant]
     Active Substance: ACETAMINOPHEN
     Indication: PAIN
     Dosage: 1000 MG, Q8HR, IN THE EVENT OF PAIN
  3. PANTOPRAZOLE SODIUM SESQUIHYDRATE [Concomitant]
     Active Substance: PANTOPRAZOLE SODIUM
     Dosage: 40 MG, QD, 1 TABLET IN THE EVENING
  4. BOSENTAN. [Concomitant]
     Active Substance: BOSENTAN
     Dosage: UNK
     Dates: start: 20160602
  5. LASILIX [FUROSEMIDE] [Concomitant]
     Active Substance: FUROSEMIDE
     Dosage: 1 DF, BID, MORNING AND MIDDAY
  6. MACROGOL;POTASSIUM CHLORIDE;SODIUM BICARBONATE;SODIUM CHLORIDE [Concomitant]
     Active Substance: POLYETHYLENE GLYCOL\POTASSIUM CHLORIDE\SODIUM BICARBONATE\SODIUM CHLORIDE
     Indication: CONSTIPATION
     Dosage: 1 UNK, SACHET IN THE MORNING IN THE EVENT OF CONSTIPATION
  7. SODIUM BICARBONATE. [Concomitant]
     Active Substance: SODIUM BICARBONATE
     Dosage: MORNING, MIDDAY AND EVENING
  8. BISOCE [Concomitant]
     Active Substance: BISOPROLOL
     Dosage: 1 DF, 1 TABLET MORNING AND MIDDAY
  9. OXYGEN. [Concomitant]
     Active Substance: OXYGEN
     Dosage: 1.5 L, Q1MIN
  10. ADCIRCA [Concomitant]
     Active Substance: TADALAFIL
     Dosage: 40 MG, QD
     Dates: start: 20160602
  11. TRACLEER [Concomitant]
     Active Substance: BOSENTAN
     Indication: HYPOKALAEMIA
     Dosage: 250 MG, QD
  12. KAYEXALATE [Concomitant]
     Active Substance: SODIUM POLYSTYRENE SULFONATE
     Dosage: 1 DF, SCOOP EVERY 2 DAYS DEPENDING ON BLOOD POTASSIUM LEVEL

REACTIONS (1)
  - Systemic scleroderma [Fatal]

NARRATIVE: CASE EVENT DATE: 202006
